FAERS Safety Report 4342279-0 (Version None)
Quarter: 2004Q2

REPORT INFORMATION
  Report Type: 
  Country: None (occurrence: None)
  Receive Date: 20040415
  Receipt Date: 20040402
  Transmission Date: 20050107
  Serious: Yes (Other)
  Sender: FDA-Public Use
  Company Number: 2004UW06643

PATIENT
  Sex: Male

DRUGS (3)
  1. SEROQUEL [Suspect]
  2. CLOZARIL [Concomitant]
  3. DEPAKOTE [Concomitant]

REACTIONS (2)
  - NEUTROPENIA [None]
  - WHITE BLOOD CELL COUNT DECREASED [None]
